FAERS Safety Report 5523398-X (Version None)
Quarter: 2007Q4

REPORT INFORMATION
  Report Type: 
  Country: None (occurrence: None)
  Receive Date: 20071121
  Receipt Date: 20071119
  Transmission Date: 20080405
  Serious: Yes (Hospitalization)
  Sender: FDA-Public Use
  Company Number: FR-BRISTOL-MYERS SQUIBB COMPANY-13988035

PATIENT
  Age: 73 Year
  Sex: Male

DRUGS (7)
  1. APROVEL TABS [Suspect]
     Route: 048
  2. OFLOCET [Suspect]
     Route: 048
     Dates: end: 20070607
  3. FLAGYL [Suspect]
     Route: 048
     Dates: start: 20070607, end: 20070618
  4. AUGMENTIN [Suspect]
     Dosage: 1 DOSAGE FORM = 1G/200MG
     Route: 042
     Dates: start: 20070612
  5. CALCIPARINE [Suspect]
     Route: 058
     Dates: start: 20070609, end: 20070618
  6. CARDENSIEL [Suspect]
     Route: 048
  7. PERFALGAN [Concomitant]
     Dates: end: 20070617

REACTIONS (6)
  - DYSPNOEA [None]
  - HYPOVENTILATION [None]
  - PRODUCTIVE COUGH [None]
  - PURPURA [None]
  - PYREXIA [None]
  - THROMBOCYTOPENIA [None]
